FAERS Safety Report 24312819 (Version 1)
Quarter: 2024Q3

REPORT INFORMATION
  Report Type: Spontaneous
  Country: CN (occurrence: CN)
  Receive Date: 20240912
  Receipt Date: 20240912
  Transmission Date: 20241016
  Serious: Yes (Other)
  Sender: ELI LILLY AND CO
  Company Number: CN-Merck Healthcare KGaA-2024047596

PATIENT
  Age: 61 Year
  Sex: Male
  Weight: 70 kg

DRUGS (3)
  1. ERBITUX [Suspect]
     Active Substance: CETUXIMAB
     Indication: Lip and/or oral cavity cancer
     Dosage: 726 MG, UNKNOWN
     Route: 041
     Dates: start: 20240816, end: 20240816
  2. GEMCITABINE HYDROCHLORIDE [Suspect]
     Active Substance: GEMCITABINE HYDROCHLORIDE
     Indication: Lip and/or oral cavity cancer
     Dosage: 1.81 G, DAILY
     Route: 041
     Dates: start: 20240816, end: 20240816
  3. CISPLATIN [Suspect]
     Active Substance: CISPLATIN
     Indication: Lip and/or oral cavity cancer
     Dosage: 0.48 MG, DAILY
     Route: 041
     Dates: start: 20240816, end: 20240818

REACTIONS (1)
  - Platelet count decreased [Recovered/Resolved]

NARRATIVE: CASE EVENT DATE: 20240826
